FAERS Safety Report 16409661 (Version 1)
Quarter: 2019Q2

REPORT INFORMATION
  Report Type: Report from Study
  Country: US (occurrence: US)
  Receive Date: 20190610
  Receipt Date: 20190610
  Transmission Date: 20190711
  Serious: Yes (Hospitalization, Other)
  Sender: FDA-Public Use
  Company Number: US-GILEAD-2019-0407493

PATIENT
  Age: 12 Year
  Sex: Female

DRUGS (2)
  1. ORKAMBI [Suspect]
     Active Substance: IVACAFTOR\LUMACAFTOR
     Indication: CYSTIC FIBROSIS
     Dosage: TAKE 2 TABS PO EVERY 12 HOURS
     Route: 048
     Dates: start: 20180328
  2. AZTREONAM LYSINE [Suspect]
     Active Substance: AZTREONAM LYSINE
     Indication: CYSTIC FIBROSIS
     Dosage: 1 ML, TID; 28 DAYS ON AND 28 DAYS OFF
     Route: 055
     Dates: start: 20180731

REACTIONS (3)
  - Appendicectomy [Unknown]
  - Constipation [Unknown]
  - Memory impairment [Unknown]

NARRATIVE: CASE EVENT DATE: 201904
